FAERS Safety Report 4596558-2 (Version None)
Quarter: 2005Q1

REPORT INFORMATION
  Report Type: 
  Country: None (occurrence: None)
  Receive Date: 20050228
  Receipt Date: 20040407
  Transmission Date: 20050727
  Serious: Yes (Hospitalization)
  Sender: FDA-Public Use
  Company Number: 7848

PATIENT
  Age: 59 Year
  Sex: Male

DRUGS (9)
  1. METHOTREXATE [Suspect]
     Indication: RHEUMATOID ARTHRITIS
     Dosage: 25 MG WEEKLY PO
     Route: 048
     Dates: start: 20020601, end: 20040301
  2. COREG [Concomitant]
  3. LASIX [Concomitant]
  4. CELEBREX [Concomitant]
  5. ZOCOR [Concomitant]
  6. LANOXIN [Concomitant]
  7. ASPIRIN 10GR TIMED DISINTEGRATION TAB [Concomitant]
  8. HUMULIN I [Concomitant]
  9. COUMADIN [Concomitant]

REACTIONS (10)
  - ANAEMIA [None]
  - DRUG INTERACTION POTENTIATION [None]
  - FEMORAL ARTERIAL STENOSIS [None]
  - GANGRENE [None]
  - INFECTION [None]
  - INTERNATIONAL NORMALISED RATIO DECREASED [None]
  - POST PROCEDURAL COMPLICATION [None]
  - PROTHROMBIN TIME PROLONGED [None]
  - RENAL FAILURE ACUTE [None]
  - TOE AMPUTATION [None]
